FAERS Safety Report 23636691 (Version 1)
Quarter: 2024Q1

REPORT INFORMATION
  Report Type: Spontaneous
  Country: JP (occurrence: JP)
  Receive Date: 20240315
  Receipt Date: 20240315
  Transmission Date: 20240409
  Serious: Yes (Other)
  Sender: FDA-Public Use
  Company Number: JP-DSJP-DSJ-2024-111385

PATIENT
  Age: 80 Year
  Sex: Male

DRUGS (1)
  1. EDOXABAN TOSYLATE [Suspect]
     Active Substance: EDOXABAN TOSYLATE
     Indication: Vertebrobasilar insufficiency
     Dosage: 60MG/DAY
     Route: 065

REACTIONS (1)
  - Ischaemic stroke [Recovering/Resolving]
